FAERS Safety Report 15469741 (Version 1)
Quarter: 2018Q4

REPORT INFORMATION
  Report Type: Spontaneous
  Country: US (occurrence: US)
  Receive Date: 20181005
  Receipt Date: 20181005
  Transmission Date: 20190205
  Serious: Yes (Other)
  Sender: FDA-Public Use
  Company Number: US-ASTRAZENECA-2018SF27723

PATIENT
  Age: 9 Year
  Sex: Male

DRUGS (1)
  1. SYMBICORT [Suspect]
     Active Substance: BUDESONIDE\FORMOTEROL FUMARATE DIHYDRATE
     Dosage: 80/4.5 MCG TWICE A DAY
     Route: 055
     Dates: end: 20180925

REACTIONS (10)
  - Pain [Unknown]
  - Palpitations [Unknown]
  - Chest discomfort [Unknown]
  - Muscular weakness [Unknown]
  - Arrhythmia [Unknown]
  - Electrocardiogram QT interval abnormal [Unknown]
  - Weight decreased [Unknown]
  - Dyskinesia [Unknown]
  - Eye movement disorder [Unknown]
  - Hypopnoea [Unknown]
